FAERS Safety Report 22760948 (Version 2)
Quarter: 2025Q1

REPORT INFORMATION
  Report Type: Report from Study
  Country: FR (occurrence: FR)
  Receive Date: 20230728
  Receipt Date: 20250226
  Transmission Date: 20250408
  Serious: Yes (Hospitalization)
  Sender: ALNYLAM PHARMACEUTICALS
  Company Number: FR-ALNYLAM PHARMACEUTICALS, INC.-ALN-2023-003589

PATIENT

DRUGS (1)
  1. ONPATTRO [Suspect]
     Active Substance: PATISIRAN SODIUM
     Indication: Product used for unknown indication
     Route: 065

REACTIONS (3)
  - Headache [Unknown]
  - Sinusitis [Unknown]
  - Vertigo [Unknown]
